FAERS Safety Report 8124848-5 (Version None)
Quarter: 2012Q1

REPORT INFORMATION
  Report Type: 
  Country: None (occurrence: None)
  Receive Date: 20120209
  Receipt Date: 20120202
  Transmission Date: 20120608
  Serious: Yes (Other)
  Sender: FDA-Public Use
  Company Number: DE-JNJFOC-20120203140

PATIENT
  Age: 46 Year
  Sex: Male

DRUGS (5)
  1. SEROQUEL [Concomitant]
     Route: 048
  2. RISPERDAL [Suspect]
     Indication: DEPRESSIVE DELUSION
     Route: 048
     Dates: start: 20120122
  3. RISPERDAL [Suspect]
     Route: 048
     Dates: start: 20120116, end: 20120121
  4. ANAFRANIL [Concomitant]
     Route: 048
  5. LUDIOMIL [Concomitant]
     Route: 048

REACTIONS (6)
  - THIRST [None]
  - CONFUSIONAL STATE [None]
  - INTENTIONAL SELF-INJURY [None]
  - DELIRIUM [None]
  - RESTLESSNESS [None]
  - TENSION [None]
